FAERS Safety Report 18399162 (Version 1)
Quarter: 2020Q4

REPORT INFORMATION
  Report Type: Other
  Country: FR (occurrence: FR)
  Receive Date: 20201019
  Receipt Date: 20201019
  Transmission Date: 20210114
  Serious: Yes (Hospitalization, Other)
  Sender: FDA-Public Use
  Company Number: FR-ASPEN-GLO2020FR010161

PATIENT
  Age: 49 Year
  Sex: Male

DRUGS (1)
  1. ORGARAN [Suspect]
     Active Substance: DANAPAROID SODIUM
     Indication: VENA CAVA THROMBOSIS
     Dosage: CURATIF
     Route: 042

REACTIONS (3)
  - Thrombosis [Recovered/Resolved]
  - Off label use [Unknown]
  - Heparin-induced thrombocytopenia [Recovered/Resolved]

NARRATIVE: CASE EVENT DATE: 201806
